FAERS Safety Report 18599488 (Version 1)
Quarter: 2020Q4

REPORT INFORMATION
  Report Type: Spontaneous
  Country: US (occurrence: US)
  Receive Date: 20201209
  Receipt Date: 20201209
  Transmission Date: 20210114
  Serious: Yes (Hospitalization)
  Sender: FDA-Public Use
  Company Number: None

PATIENT
  Age: 61 Year
  Sex: Female
  Weight: 89 kg

DRUGS (1)
  1. BAMLANIVIMAB. [Suspect]
     Active Substance: BAMLANIVIMAB
     Indication: COVID-19
     Dosage: ?          OTHER FREQUENCY:ONE TIME DOSE;?
     Route: 040
     Dates: start: 20201208, end: 20201208

REACTIONS (8)
  - Nausea [None]
  - Aspartate aminotransferase increased [None]
  - Pain [None]
  - Pyrexia [None]
  - C-reactive protein increased [None]
  - Alanine aminotransferase increased [None]
  - Procalcitonin increased [None]
  - Condition aggravated [None]

NARRATIVE: CASE EVENT DATE: 20201208
